FAERS Safety Report 6314446-8 (Version None)
Quarter: 2009Q3

REPORT INFORMATION
  Report Type: 
  Country: None (occurrence: None)
  Receive Date: 20090817
  Receipt Date: 20090817
  Transmission Date: 20100115
  Serious: No
  Sender: FDA-Public Use
  Company Number: None

PATIENT
  Age: 53 Year
  Sex: Female
  Weight: 77.1115 kg

DRUGS (1)
  1. CYMBALTA [Suspect]
     Indication: NECK PAIN
     Dosage: ONE PILL DAILY PO
     Route: 048
     Dates: start: 20090518, end: 20090806

REACTIONS (8)
  - ARTHRALGIA [None]
  - DRUG WITHDRAWAL SYNDROME [None]
  - DYSKINESIA [None]
  - HEADACHE [None]
  - INFLUENZA [None]
  - NAUSEA [None]
  - PARAESTHESIA [None]
  - VOMITING [None]
